FAERS Safety Report 6260576-9 (Version None)
Quarter: 2009Q2

REPORT INFORMATION
  Report Type: 
  Country: None (occurrence: None)
  Receive Date: 20090625
  Receipt Date: 20090612
  Transmission Date: 20091009
  Serious: Yes (Hospitalization)
  Sender: FDA-Public Use
  Company Number: AEDEU200900052

PATIENT
  Age: 63 Year
  Sex: Male
  Weight: 85 kg

DRUGS (8)
  1. GAMUNEX [Suspect]
     Indication: MULTIFOCAL MOTOR NEUROPATHY
     Dosage: 30 GM; QM; IV
     Route: 042
     Dates: start: 20000101, end: 20090320
  2. GAMUNEX [Suspect]
  3. ASPIRIN [Concomitant]
  4. PROVAS /01319601/ [Concomitant]
  5. PROTHIPENDYL [Concomitant]
  6. METOPROLOL SUCCINATE [Concomitant]
  7. CLIMEPIRIDE [Concomitant]
  8. AZATHIOPRIN [Concomitant]

REACTIONS (2)
  - ANAPHYLACTIC REACTION [None]
  - ANGIOEDEMA [None]
